FAERS Safety Report 16535168 (Version 1)
Quarter: 2019Q3

REPORT INFORMATION
  Report Type: Spontaneous
  Country: US (occurrence: US)
  Receive Date: 20190705
  Receipt Date: 20190705
  Transmission Date: 20191004
  Serious: Yes (Death)
  Sender: FDA-Public Use
  Company Number: US-SCIEGEN PHARMACEUTICALS INC-2019SCILIT00212

PATIENT
  Age: 25 Year
  Sex: Female

DRUGS (3)
  1. LITHIUM. [Interacting]
     Active Substance: LITHIUM
  2. FLUOXETINE [Suspect]
     Active Substance: FLUOXETINE HYDROCHLORIDE
  3. 25I-NBOME [Interacting]
     Active Substance: 25I-NBOME

REACTIONS (3)
  - Drug interaction [Fatal]
  - Serotonin syndrome [Fatal]
  - Cardio-respiratory arrest [Fatal]
